FAERS Safety Report 21605705 (Version 1)
Quarter: 2022Q4

REPORT INFORMATION
  Report Type: Spontaneous
  Country: US (occurrence: US)
  Receive Date: 20221116
  Receipt Date: 20221116
  Transmission Date: 20230113
  Serious: Yes (Other)
  Sender: FDA-Public Use
  Company Number: US-AMGEN-USASP2022194223

PATIENT
  Age: 68 Year
  Sex: Male

DRUGS (1)
  1. RITUXIMAB [Suspect]
     Active Substance: RITUXIMAB
     Indication: Immunoglobulin G4 related disease
     Dosage: UNK
     Route: 065

REACTIONS (13)
  - Immunoglobulin G4 related disease [Unknown]
  - Pulmonary artery dilatation [Unknown]
  - Pulmonary artery wall hypertrophy [Unknown]
  - Coronary artery dilatation [Unknown]
  - Arterial wall hypertrophy [Unknown]
  - Left ventricular dysfunction [Unknown]
  - Pulmonary mass [Unknown]
  - Bronchial wall thickening [Unknown]
  - Hilar lymphadenopathy [Unknown]
  - Lymphadenopathy mediastinal [Unknown]
  - Dyspnoea exertional [Unknown]
  - Off label use [Unknown]
  - Serum sickness [Unknown]
